FAERS Safety Report 7227332-6 (Version None)
Quarter: 2011Q1

REPORT INFORMATION
  Report Type: 
  Country: None (occurrence: None)
  Receive Date: 20110105
  Receipt Date: 20101221
  Transmission Date: 20110831
  Serious: Yes (Hospitalization)
  Sender: FDA-Public Use
  Company Number: 2010120038

PATIENT
  Age: 53 Year
  Sex: Male
  Weight: 125 kg

DRUGS (16)
  1. TORSEMIDE [Suspect]
     Dosage: 15 MG (15 MG, 1 IN 1 D), ORAL
     Route: 048
     Dates: end: 20101118
  2. AUGMENTIN '125' [Concomitant]
  3. CELLCEPT [Concomitant]
  4. ASPIRIN [Concomitant]
  5. CALCIMAGON D3 (COLECALCIFEROL, CALCIUM CARBONATE) [Concomitant]
  6. VALCYTE (VALGANCICLOVIR HCL) [Concomitant]
  7. SELIPRAN (PRAVASTATIN SODIUM) [Concomitant]
  8. KCL RETARD ZYMA (POTASSIUM CHLORIDE) [Concomitant]
  9. OTRIVIN (XYCLOMETAROLINE HYDROCHLORIDE) [Concomitant]
  10. SANDIMMUNE [Suspect]
     Indication: HEART TRANSPLANT
     Dosage: 300 MG (150 MG, 2 IN 1 D), ORAL
     Route: 048
     Dates: start: 20090124
  11. METOPROLOL SUCCINATE [Concomitant]
  12. ALLOPURINOL [Concomitant]
  13. MAGNESIUM (MAANESIUM) [Concomitant]
  14. PREDNISON GALEPHARM (PREDNISONE) [Concomitant]
  15. CARDURA CR (DOXAZOSIN MESILATE) [Concomitant]
  16. ACETAMINOPHEN [Concomitant]

REACTIONS (4)
  - PARAESTHESIA [None]
  - GOUTY ARTHRITIS [None]
  - RENAL FAILURE CHRONIC [None]
  - BLOOD PRESSURE DIASTOLIC INCREASED [None]
